FAERS Safety Report 16832909 (Version 1)
Quarter: 2019Q3

REPORT INFORMATION
  Report Type: Spontaneous
  Country: US (occurrence: US)
  Receive Date: 20190731
  Receipt Date: 20190731
  Transmission Date: 20191005
  Serious: No
  Sender: FDA-Public Use
  Company Number: None

PATIENT
  Age: 44 Year
  Sex: Female

DRUGS (1)
  1. TREMFYA [Suspect]
     Active Substance: GUSELKUMAB
     Dates: start: 201904

REACTIONS (4)
  - Therapeutic response shortened [None]
  - Pruritus [None]
  - Pain of skin [None]
  - Skin lesion [None]

NARRATIVE: CASE EVENT DATE: 20190731
